FAERS Safety Report 19887192 (Version 1)
Quarter: 2021Q3

REPORT INFORMATION
  Report Type: Spontaneous
  Country: US (occurrence: US)
  Receive Date: 20210927
  Receipt Date: 20210927
  Transmission Date: 20211014
  Serious: No
  Sender: FDA-Public Use
  Company Number: US-BAUSCH-BL-2021-031973

PATIENT
  Sex: Female

DRUGS (2)
  1. METRONIDAZOLE VAGINAL GEL [Suspect]
     Active Substance: METRONIDAZOLE
     Indication: BACTERIAL VAGINOSIS
     Route: 067
  2. TUKYSA [Concomitant]
     Active Substance: TUCATINIB
     Indication: BENIGN BREAST NEOPLASM
     Route: 065

REACTIONS (3)
  - Acne [Unknown]
  - Diarrhoea [Unknown]
  - Illness [Unknown]
